FAERS Safety Report 20105020 (Version 1)
Quarter: 2021Q4

REPORT INFORMATION
  Report Type: Spontaneous
  Country: PL (occurrence: PL)
  Receive Date: 20211124
  Receipt Date: 20211124
  Transmission Date: 20220303
  Serious: Yes (Other)
  Sender: FDA-Public Use
  Company Number: PL-SUN PHARMACEUTICAL INDUSTRIES LTD-2021RR-318236

PATIENT
  Age: 24 Year
  Sex: Female
  Weight: 54 kg

DRUGS (2)
  1. SUNITINIB [Suspect]
     Active Substance: SUNITINIB
     Indication: Alveolar soft part sarcoma
     Dosage: 37.5 MILLIGRAM, DAILY (0.0375 GRAM, DAILY)
     Route: 065
  2. PAZOPANIB [Suspect]
     Active Substance: PAZOPANIB
     Indication: Alveolar soft part sarcoma
     Dosage: 400 MILLIGRAM, BID
     Route: 065

REACTIONS (12)
  - Treatment failure [Unknown]
  - Malignant neoplasm progression [Unknown]
  - Malignant neoplasm progression [Unknown]
  - Diarrhoea [Unknown]
  - Fatigue [Unknown]
  - Abdominal pain [Unknown]
  - Headache [Unknown]
  - Decreased appetite [Unknown]
  - Hair colour changes [Unknown]
  - Photosensitivity reaction [Unknown]
  - Body mass index decreased [Unknown]
  - Malignant neoplasm progression [Unknown]

NARRATIVE: CASE EVENT DATE: 20130501
